FAERS Safety Report 14552248 (Version 2)
Quarter: 2018Q2

REPORT INFORMATION
  Report Type: Report from Study
  Country: BE (occurrence: BE)
  Receive Date: 20180220
  Receipt Date: 20180425
  Transmission Date: 20180711
  Serious: Yes (Hospitalization, Other)
  Sender: FDA-Public Use
  Company Number: PHHY2018BE005676

PATIENT
  Age: 58 Year
  Sex: Female
  Weight: 57 kg

DRUGS (4)
  1. ENTRESTO [Suspect]
     Active Substance: SACUBITRIL\VALSARTAN
     Indication: CARDIAC FAILURE
     Dosage: 50 MG (24MG OF SACUBITRIL AND 26MG OF VALSARTAN), UNK
     Route: 048
     Dates: start: 20170522, end: 20170822
  2. ENTRESTO [Suspect]
     Active Substance: SACUBITRIL\VALSARTAN
     Dosage: 50 MG (24MG OF SACUBITRIL AND 26MG OF VALSARTAN), UNK
     Route: 048
     Dates: start: 20170912, end: 20170915
  3. ENTRESTO [Suspect]
     Active Substance: SACUBITRIL\VALSARTAN
     Dosage: 50 MG (24MG OF SACUBITRIL AND 26MG OF VALSARTAN), BID
     Route: 048
     Dates: start: 20170825, end: 20170903
  4. ENTRESTO [Suspect]
     Active Substance: SACUBITRIL\VALSARTAN
     Dosage: 50 MG (24MG OF SACUBITRIL AND 26MG OF VALSARTAN), UNK
     Route: 048
     Dates: start: 20171122, end: 20171211

REACTIONS (18)
  - Leriche syndrome [Recovering/Resolving]
  - General physical health deterioration [Not Recovered/Not Resolved]
  - Decreased appetite [Unknown]
  - Thrombosis [Recovered/Resolved]
  - Sepsis [Recovering/Resolving]
  - Abdominal infection [Recovering/Resolving]
  - Arrhythmia [Recovered/Resolved]
  - Malnutrition [Recovering/Resolving]
  - Vascular graft thrombosis [Recovered/Resolved]
  - Urinoma [Recovering/Resolving]
  - Pyrexia [Recovered/Resolved]
  - Vomiting [Recovering/Resolving]
  - Creatinine renal clearance decreased [Unknown]
  - Hypokalaemia [Recovered/Resolved]
  - Hyperkalaemia [Recovered/Resolved]
  - Concomitant disease aggravated [Not Recovered/Not Resolved]
  - Blood creatinine increased [Recovered/Resolved]
  - Blood potassium decreased [Unknown]

NARRATIVE: CASE EVENT DATE: 20170821
